FAERS Safety Report 6817559-7 (Version None)
Quarter: 2010Q3

REPORT INFORMATION
  Report Type: 
  Country: None (occurrence: None)
  Receive Date: 20100706
  Receipt Date: 20100622
  Transmission Date: 20110219
  Serious: Yes (Hospitalization)
  Sender: FDA-Public Use
  Company Number: US-SANOFI-AVENTIS-2010SA036258

PATIENT
  Sex: Female

DRUGS (2)
  1. MULTAQ [Suspect]
     Indication: ATRIAL FIBRILLATION
     Route: 048
     Dates: end: 20100601
  2. COZAAR [Concomitant]

REACTIONS (3)
  - CARDIAC ARREST [None]
  - TORSADE DE POINTES [None]
  - VENTRICULAR TACHYCARDIA [None]
